FAERS Safety Report 8209872-6 (Version None)
Quarter: 2012Q1

REPORT INFORMATION
  Report Type: 
  Country: None (occurrence: None)
  Receive Date: 20120314
  Receipt Date: 20120307
  Transmission Date: 20120608
  Serious: Yes (Hospitalization, Other)
  Sender: FDA-Public Use
  Company Number: US-ABBOTT-12P-163-0912809-00

PATIENT
  Age: 62 Year
  Sex: Female

DRUGS (1)
  1. HUMIRA [Suspect]
     Indication: CROHN'S DISEASE
     Dates: start: 20101210

REACTIONS (9)
  - DIPLOPIA [None]
  - HAEMOGLOBIN INCREASED [None]
  - HYPERTENSION [None]
  - HAEMATOCRIT INCREASED [None]
  - HYPERHIDROSIS [None]
  - DIARRHOEA [None]
  - DEHYDRATION [None]
  - FATIGUE [None]
  - UPPER RESPIRATORY TRACT INFECTION [None]
